FAERS Safety Report 19254978 (Version 1)
Quarter: 2021Q2

REPORT INFORMATION
  Report Type: Spontaneous
  Country: IN (occurrence: IN)
  Receive Date: 20210513
  Receipt Date: 20210513
  Transmission Date: 20210717
  Serious: Yes (Life-Threatening, Hospitalization, Other)
  Sender: FDA-Public Use
  Company Number: IN-ACCORD-224521

PATIENT
  Age: 30 Year
  Sex: Male

DRUGS (6)
  1. TRAMADOL. [Interacting]
     Active Substance: TRAMADOL
     Indication: INSOMNIA
  2. METOCLOPRAMIDE. [Interacting]
     Active Substance: METOCLOPRAMIDE
     Indication: HEADACHE
  3. ONDANSETRON [Interacting]
     Active Substance: ONDANSETRON
     Indication: INSOMNIA
  4. METOCLOPRAMIDE. [Interacting]
     Active Substance: METOCLOPRAMIDE
     Indication: INSOMNIA
  5. TRAMADOL. [Interacting]
     Active Substance: TRAMADOL
     Indication: HEADACHE
  6. ONDANSETRON [Suspect]
     Active Substance: ONDANSETRON
     Indication: HEADACHE

REACTIONS (7)
  - Acute kidney injury [Recovered/Resolved]
  - Serotonin syndrome [Recovered/Resolved]
  - Toxicity to various agents [Unknown]
  - Renal tubular injury [Recovered/Resolved]
  - Drug interaction [Unknown]
  - Rhabdomyolysis [Recovered/Resolved]
  - Myoglobinuria [Recovered/Resolved]
